FAERS Safety Report 7627953 (Version 5)
Quarter: 2016Q4

REPORT INFORMATION
  Report Type: Spontaneous
  Country: US (occurrence: US)
  Receive Date: 20101013
  Receipt Date: 20161214
  Transmission Date: 20170207
  Serious: Yes (Death, Other)
  Sender: FDA-Public Use
  Company Number: US-ASTRAZENECA-2009SE24181

PATIENT
  Age: 69 Year
  Sex: Male

DRUGS (8)
  1. THEOPHYLLINE [Concomitant]
     Active Substance: THEOPHYLLINE ANHYDROUS
  2. SYMBICORT [Suspect]
     Active Substance: BUDESONIDE\FORMOTEROL FUMARATE DIHYDRATE
     Dosage: TWO PUFFS, TWO TIMES A DAY
     Route: 055
     Dates: start: 200903
  3. SPIRIVA [Concomitant]
     Active Substance: TIOTROPIUM BROMIDE MONOHYDRATE
  4. SYMBICORT [Suspect]
     Active Substance: BUDESONIDE\FORMOTEROL FUMARATE DIHYDRATE
     Dosage: DOSE UNKNOWN, EVERY MORNING
     Route: 055
  5. SYMBICORT [Suspect]
     Active Substance: BUDESONIDE\FORMOTEROL FUMARATE DIHYDRATE
     Dosage: 160 / 4.5 MCG, UNKNOWN UNKNOWN
     Route: 055
  6. FOLIC ACID. [Concomitant]
     Active Substance: FOLIC ACID
  7. PREDNISONE. [Concomitant]
     Active Substance: PREDNISONE
  8. OXYGEN. [Concomitant]
     Active Substance: OXYGEN

REACTIONS (11)
  - Fibroma [Unknown]
  - Emphysema [Unknown]
  - Decreased activity [Unknown]
  - Death [Fatal]
  - Dyspnoea [Unknown]
  - Drug dose omission [Unknown]
  - Product quality issue [Unknown]
  - Arthritis [Unknown]
  - Pulmonary function test decreased [Not Recovered/Not Resolved]
  - Weight decreased [Unknown]
  - Decreased appetite [Unknown]
